FAERS Safety Report 8447871 (Version 3)
Quarter: 2012Q4

REPORT INFORMATION
  Report Type: 
  Country: US (occurrence: US)
  Receive Date: 20120308
  Receipt Date: 20121023
  Transmission Date: 20130627
  Serious: Yes (Hospitalization)
  Sender: FDA-Public Use
  Company Number: US-BAYER-2012-020453

PATIENT
  Age: 46 Year
  Sex: Female
  Weight: 86 kg

DRUGS (10)
  1. YASMIN [Suspect]
     Indication: UTERINE DISORDER
     Dosage: UNK
     Dates: start: 200312, end: 20040419
  2. NEXIUM [Concomitant]
     Indication: ACID REFLUX (OESOPHAGEAL)
     Dosage: UNK
     Dates: start: 2000
  3. MULTI VITAMIN [Concomitant]
     Indication: GENERAL PHYSICAL HEALTH DETERIORATION
     Dosage: UNK
     Dates: start: 200403, end: 200404
  4. PAXIL [Concomitant]
     Indication: DEPRESSION
     Dosage: UNK
     Dates: start: 200402, end: 200404
  5. ADVAIR [Concomitant]
     Dosage: UNK
     Dates: start: 20040328
  6. AMOXICILLIN [Concomitant]
     Dosage: UNK
     Dates: start: 20040124
  7. FLONASE [Concomitant]
  8. OVCON-35 [Concomitant]
     Indication: HYPERPLASIA
  9. OVCON-35 [Concomitant]
     Indication: MENSES IRREGULAR
  10. OVCON-50 [Concomitant]

REACTIONS (5)
  - Cerebrovascular accident [None]
  - Hemiplegia [None]
  - Cerebrovascular accident [None]
  - Thrombophlebitis superficial [None]
  - Deep vein thrombosis [None]
